FAERS Safety Report 18192252 (Version 1)
Quarter: 2020Q3

REPORT INFORMATION
  Report Type: Spontaneous
  Country: US (occurrence: US)
  Receive Date: 20200825
  Receipt Date: 20200825
  Transmission Date: 20201103
  Serious: Yes (Other)
  Sender: FDA-Public Use
  Company Number: None

PATIENT
  Age: 34 Year
  Sex: Female
  Weight: 58.05 kg

DRUGS (7)
  1. STOOL SOFTENER (DOCUSATE) [Concomitant]
     Active Substance: DOCUSATE
  2. IBUPROFEN. [Concomitant]
     Active Substance: IBUPROFEN
  3. PRENATAL SUPPLEMENT [Concomitant]
  4. TYLENOL [Concomitant]
     Active Substance: ACETAMINOPHEN
  5. VEGAN DHA SUPPLEMENT [Concomitant]
  6. BLUMEN CLEAR ADVANCED HAND SANITIZER [Suspect]
     Active Substance: ALCOHOL
     Indication: COVID-19 PROPHYLAXIS
     Dosage: ?          OTHER STRENGTH:V/V;QUANTITY:1 LITER;OTHER FREQUENCY:30+ TIMES PER DAY;?
     Route: 061
     Dates: start: 20200615, end: 20200727
  7. CA/MG SUPPLEMENT [Concomitant]

REACTIONS (14)
  - Fatigue [None]
  - Dyspnoea [None]
  - Feeling abnormal [None]
  - Dysarthria [None]
  - Paraesthesia [None]
  - Hypoaesthesia [None]
  - Muscular weakness [None]
  - Presyncope [None]
  - Mental impairment [None]
  - Electrocardiogram abnormal [None]
  - Vertigo [None]
  - Recalled product administered [None]
  - Anion gap [None]
  - Loss of consciousness [None]

NARRATIVE: CASE EVENT DATE: 20200728
